FAERS Safety Report 24318812 (Version 1)
Quarter: 2024Q3

REPORT INFORMATION
  Report Type: Report from Study
  Country: CN (occurrence: CN)
  Receive Date: 20240913
  Receipt Date: 20240913
  Transmission Date: 20241017
  Serious: Yes (Hospitalization)
  Sender: ELI LILLY AND CO
  Company Number: CN-ELI_LILLY_AND_COMPANY-CN202409002260

PATIENT
  Age: 60 Year
  Sex: Male

DRUGS (3)
  1. CYRAMZA [Suspect]
     Active Substance: RAMUCIRUMAB
     Indication: Gastric neoplasm
     Dosage: 440 MG, UNKNOWN
     Route: 065
     Dates: start: 20240819
  2. SINTILIMAB [Concomitant]
     Active Substance: SINTILIMAB
     Indication: Gastric cancer
     Dosage: 200 MG, UNKNOWN
     Route: 065
     Dates: start: 20240819
  3. PACLITAXEL [Concomitant]
     Active Substance: PACLITAXEL
     Indication: Gastric cancer
     Dosage: UNK UNK, UNKNOWN
     Route: 065
     Dates: start: 20240819

REACTIONS (13)
  - Nausea [Unknown]
  - Vomiting [Unknown]
  - Palpitations [Unknown]
  - Discomfort [Unknown]
  - Abdominal pain [Unknown]
  - Blood gases abnormal [Unknown]
  - Blood electrolytes abnormal [Unknown]
  - Liver function test abnormal [Unknown]
  - Cachexia [Unknown]
  - Abdominal distension [Unknown]
  - Malnutrition [Unknown]
  - Peritonitis [Unknown]
  - Abdominal tenderness [Unknown]

NARRATIVE: CASE EVENT DATE: 20240822
